FAERS Safety Report 18866564 (Version 2)
Quarter: 2021Q3

REPORT INFORMATION
  Report Type: Spontaneous
  Country: FR (occurrence: FR)
  Receive Date: 20210209
  Receipt Date: 20210809
  Transmission Date: 20211014
  Serious: Yes (Hospitalization, Other)
  Sender: FDA-Public Use
  Company Number: FR-MYLANLABS-2018M1014262

PATIENT
  Age: 13 Year
  Sex: Female

DRUGS (23)
  1. CLOZAPINE. [Suspect]
     Active Substance: CLOZAPINE
     Indication: OPPOSITIONAL DEFIANT DISORDER
  2. RISPERIDONE. [Suspect]
     Active Substance: RISPERIDONE
     Indication: OPPOSITIONAL DEFIANT DISORDER
  3. ARIPIPRAZOLE. [Suspect]
     Active Substance: ARIPIPRAZOLE
     Indication: OPPOSITIONAL DEFIANT DISORDER
  4. LITHIUM. [Suspect]
     Active Substance: LITHIUM
     Indication: AUTISM SPECTRUM DISORDER
     Dosage: UNK
  5. QUETIAPINE. [Suspect]
     Active Substance: QUETIAPINE
     Indication: DELUSIONAL DISORDER, UNSPECIFIED TYPE
     Dosage: UNK
     Route: 065
  6. PIMOZIDE. [Suspect]
     Active Substance: PIMOZIDE
     Indication: OPPOSITIONAL DEFIANT DISORDER
  7. PROPERICIAZINE [Suspect]
     Active Substance: PERICIAZINE
     Indication: AUTISM SPECTRUM DISORDER
     Dosage: UNK
  8. RISPERIDONE. [Suspect]
     Active Substance: RISPERIDONE
     Indication: AUTISM SPECTRUM DISORDER
     Dosage: UNK
     Route: 065
  9. ARIPIPRAZOLE. [Suspect]
     Active Substance: ARIPIPRAZOLE
     Indication: AUTISM SPECTRUM DISORDER
     Dosage: UNK
     Route: 065
  10. AMISULPRIDE [Suspect]
     Active Substance: AMISULPRIDE
     Indication: OPPOSITIONAL DEFIANT DISORDER
  11. CLOZAPINE. [Suspect]
     Active Substance: CLOZAPINE
     Indication: SCHIZOPHRENIA
  12. ARIPIPRAZOLE. [Suspect]
     Active Substance: ARIPIPRAZOLE
     Indication: DELUSIONAL DISORDER, UNSPECIFIED TYPE
  13. CYAMEMAZINE [Suspect]
     Active Substance: CYAMEMAZINE
     Indication: OPPOSITIONAL DEFIANT DISORDER
  14. PROPERICIAZINE [Suspect]
     Active Substance: PERICIAZINE
     Indication: OPPOSITIONAL DEFIANT DISORDER
  15. LOXAPINE. [Suspect]
     Active Substance: LOXAPINE
     Indication: DELUSIONAL DISORDER, UNSPECIFIED TYPE
     Dosage: UNK
     Route: 065
  16. CLOZAPINE. [Suspect]
     Active Substance: CLOZAPINE
     Indication: AUTISM SPECTRUM DISORDER
     Dosage: 400 MILLIGRAM, QD
     Route: 065
  17. SERTRALINE [Suspect]
     Active Substance: SERTRALINE HYDROCHLORIDE
     Indication: AUTISM SPECTRUM DISORDER
     Dosage: UNK
  18. CYAMEMAZINE [Suspect]
     Active Substance: CYAMEMAZINE
     Indication: AUTISM SPECTRUM DISORDER
     Dosage: UNK
  19. RISPERIDONE. [Suspect]
     Active Substance: RISPERIDONE
     Indication: DELUSIONAL DISORDER, UNSPECIFIED TYPE
  20. SERTRALINE [Suspect]
     Active Substance: SERTRALINE HYDROCHLORIDE
     Indication: OPPOSITIONAL DEFIANT DISORDER
  21. LITHIUM. [Suspect]
     Active Substance: LITHIUM
     Indication: OPPOSITIONAL DEFIANT DISORDER
  22. AMISULPRIDE [Suspect]
     Active Substance: AMISULPRIDE
     Indication: AUTISM SPECTRUM DISORDER
     Dosage: UNK
  23. PIMOZIDE. [Suspect]
     Active Substance: PIMOZIDE
     Indication: AUTISM SPECTRUM DISORDER
     Dosage: UNK

REACTIONS (12)
  - Amenorrhoea [Unknown]
  - Overdose [Unknown]
  - Dystonia [Unknown]
  - Constipation [Unknown]
  - Weight increased [Unknown]
  - Treatment failure [Unknown]
  - Hyperphagia [Unknown]
  - Extrapyramidal disorder [Unknown]
  - Hypotension [Unknown]
  - Drug ineffective [Unknown]
  - Product use issue [Unknown]
  - Galactorrhoea [Unknown]
